FAERS Safety Report 4688665-0 (Version None)
Quarter: 2005Q2

REPORT INFORMATION
  Report Type: 
  Country: None (occurrence: None)
  Receive Date: 20050613
  Receipt Date: 20050601
  Transmission Date: 20051028
  Serious: Yes (Death)
  Sender: FDA-Public Use
  Company Number: US-JNJFOC-20050601003

PATIENT
  Sex: Female

DRUGS (3)
  1. ORTHO EVRA [Suspect]
     Indication: CONTRACEPTION
     Route: 062
  2. ALIEVE [Concomitant]
  3. FLEXERIL [Concomitant]

REACTIONS (3)
  - ARTHRALGIA [None]
  - CARDIAC ARREST [None]
  - PAIN IN EXTREMITY [None]
